FAERS Safety Report 6150298-7 (Version None)
Quarter: 2009Q2

REPORT INFORMATION
  Report Type: 
  Country: None (occurrence: None)
  Receive Date: 20090409
  Receipt Date: 20090401
  Transmission Date: 20091009
  Serious: Yes (Other)
  Sender: FDA-Public Use
  Company Number: US-BAXTER-2009BH005090

PATIENT
  Sex: Male

DRUGS (6)
  1. HEPARIN SODIUM INJECTION [Suspect]
     Indication: CRANIECTOMY
     Route: 065
     Dates: start: 20070901, end: 20070901
  2. HEPARIN SODIUM INJECTION [Suspect]
     Indication: SURGERY
     Route: 065
     Dates: start: 20070901, end: 20070901
  3. HEPARIN SODIUM INJECTION [Suspect]
     Indication: METASTASIS
     Route: 065
     Dates: start: 20070901, end: 20070901
  4. HEPARIN SODIUM INJECTION [Suspect]
     Route: 065
     Dates: start: 20070910, end: 20070913
  5. HEPARIN SODIUM INJECTION [Suspect]
     Route: 065
     Dates: start: 20070910, end: 20070913
  6. HEPARIN SODIUM INJECTION [Suspect]
     Route: 065
     Dates: start: 20070910, end: 20070913

REACTIONS (1)
  - HEPARIN-INDUCED THROMBOCYTOPENIA [None]
